FAERS Safety Report 7381817-0 (Version None)
Quarter: 2011Q1

REPORT INFORMATION
  Report Type: 
  Country: None (occurrence: None)
  Receive Date: 20110329
  Receipt Date: 20110317
  Transmission Date: 20110831
  Serious: Yes (Hospitalization, Other)
  Sender: FDA-Public Use
  Company Number: PHHY2011US19699

PATIENT
  Age: 54 Year
  Sex: Male

DRUGS (2)
  1. COLCHICINE [Concomitant]
     Dosage: UNK
  2. CEFAZOLIN [Suspect]
     Indication: ANTIBIOTIC PROPHYLAXIS

REACTIONS (19)
  - GOUTY TOPHUS [None]
  - VOMITING [None]
  - DIARRHOEA [None]
  - BLOOD UREA INCREASED [None]
  - PSEUDOMEMBRANOUS COLITIS [None]
  - NAUSEA [None]
  - MUCOSAL DRYNESS [None]
  - JAUNDICE [None]
  - PSEUDOPOLYP [None]
  - BLOOD PRESSURE DECREASED [None]
  - COLITIS [None]
  - ABDOMINAL PAIN [None]
  - BLOOD CREATININE INCREASED [None]
  - CLOSTRIDIUM DIFFICILE COLITIS [None]
  - TACHYCARDIA [None]
  - BLOOD BILIRUBIN INCREASED [None]
  - GOUT [None]
  - GENERAL PHYSICAL HEALTH DETERIORATION [None]
  - CONJUNCTIVAL PALLOR [None]
